FAERS Safety Report 4389213-5 (Version None)
Quarter: 2004Q2

REPORT INFORMATION
  Report Type: 
  Country: None (occurrence: None)
  Receive Date: 20040628
  Receipt Date: 20040616
  Transmission Date: 20050107
  Serious: Yes (Death, Hospitalization)
  Sender: FDA-Public Use
  Company Number: RS004512-J

PATIENT
  Age: 61 Year
  Sex: Female

DRUGS (6)
  1. RABEPRAZOLE SODIUM [Suspect]
     Indication: GASTRITIS
     Dosage: SEE IMAGE
     Route: 048
     Dates: start: 20040508
  2. RABEPRAZOLE SODIUM [Suspect]
     Indication: REFLUX OESOPHAGITIS
     Dosage: SEE IMAGE
     Route: 048
     Dates: start: 20040508
  3. RABEPRAZOLE SODIUM [Suspect]
     Indication: GASTRITIS
     Dosage: SEE IMAGE
     Route: 048
     Dates: start: 20040517
  4. RABEPRAZOLE SODIUM [Suspect]
     Indication: REFLUX OESOPHAGITIS
     Dosage: SEE IMAGE
     Route: 048
     Dates: start: 20040517
  5. HYOSCINE HBR HYT [Concomitant]
  6. FAMOTIDINE [Concomitant]

REACTIONS (2)
  - HEPATITIS FULMINANT [None]
  - INTERSTITIAL LUNG DISEASE [None]
